FAERS Safety Report 19696754 (Version 2)
Quarter: 2025Q3

REPORT INFORMATION
  Report Type: Spontaneous
  Country: US (occurrence: US)
  Receive Date: 20210812
  Receipt Date: 20250917
  Transmission Date: 20251021
  Serious: No
  Sender: AMGEN
  Company Number: US-AMGEN-USASP2021095460

PATIENT
  Age: 55 Year
  Sex: Female

DRUGS (15)
  1. OTEZLA [Suspect]
     Active Substance: APREMILAST
     Indication: Psoriasis
     Dosage: 30 MILLIGRAM, BID
     Route: 048
     Dates: start: 20180706
  2. OTEZLA [Suspect]
     Active Substance: APREMILAST
     Dosage: 30 MILLIGRAM, BID
     Route: 048
  3. PREDNISONE [Suspect]
     Active Substance: PREDNISONE
     Indication: Product used for unknown indication
     Route: 065
  4. ALBUTEROL [Concomitant]
     Active Substance: ALBUTEROL
  5. COSENTYX [Concomitant]
     Active Substance: SECUKINUMAB
  6. EPINEPHRINE [Concomitant]
     Active Substance: EPINEPHRINE
  7. FAMOTIDINE [Concomitant]
     Active Substance: FAMOTIDINE
  8. FENOFIBRATE [Concomitant]
     Active Substance: FENOFIBRATE
  9. LEVOTHYROXINE [Concomitant]
     Active Substance: LEVOTHYROXINE
  10. MONTELUKAST [Concomitant]
     Active Substance: MONTELUKAST
  11. PRAVASTATIN [Concomitant]
     Active Substance: PRAVASTATIN
  12. PREMARIN [Concomitant]
     Active Substance: ESTROGENS, CONJUGATED
  13. SERTRALINE [Concomitant]
     Active Substance: SERTRALINE HYDROCHLORIDE
  14. SKYRIZI [Concomitant]
     Active Substance: RISANKIZUMAB-RZAA
  15. XOLAIR [Concomitant]
     Active Substance: OMALIZUMAB

REACTIONS (3)
  - Product dose omission issue [Not Recovered/Not Resolved]
  - Psoriasis [Not Recovered/Not Resolved]
  - Therapy non-responder [Unknown]
